FAERS Safety Report 7905462-0 (Version None)
Quarter: 2011Q4

REPORT INFORMATION
  Report Type: 
  Country: None (occurrence: None)
  Receive Date: 20111110
  Receipt Date: 20111103
  Transmission Date: 20120403
  Serious: Yes (Hospitalization)
  Sender: FDA-Public Use
  Company Number: US-BIOGENIDEC-2011BI042184

PATIENT
  Age: 45 Year
  Sex: Female

DRUGS (4)
  1. PROVIGIL [Concomitant]
     Indication: ASTHENIA
  2. DEXOAMPHETAMINES [Concomitant]
     Indication: ASTHENIA
  3. VITAMINS (NOS) [Concomitant]
  4. TYSABRI [Suspect]
     Indication: MULTIPLE SCLEROSIS
     Route: 042
     Dates: start: 20100401

REACTIONS (9)
  - UTERINE ENLARGEMENT [None]
  - UTERINE CYST [None]
  - ROAD TRAFFIC ACCIDENT [None]
  - ANXIETY [None]
  - MEMORY IMPAIRMENT [None]
  - HAEMORRHAGE [None]
  - POST-TRAUMATIC STRESS DISORDER [None]
  - FATIGUE [None]
  - BLOOD IRON DECREASED [None]
